FAERS Safety Report 10926415 (Version 4)
Quarter: 2015Q2

REPORT INFORMATION
  Report Type: Spontaneous
  Country: JP (occurrence: JP)
  Receive Date: 20150318
  Receipt Date: 20150616
  Transmission Date: 20150821
  Serious: Yes (Hospitalization, Other)
  Sender: FDA-Public Use
  Company Number: JP-ELI_LILLY_AND_COMPANY-JP201503004333

PATIENT
  Age: 71 Year
  Sex: Male
  Weight: 52 kg

DRUGS (13)
  1. EFIENT [Suspect]
     Active Substance: PRASUGREL HYDROCHLORIDE
     Dosage: 20 MG, SINGLE
     Route: 048
     Dates: start: 20150224, end: 20150224
  2. XYLOCAINE [Concomitant]
     Active Substance: LIDOCAINE HYDROCHLORIDE
     Indication: ACUTE MYOCARDIAL INFARCTION
     Dosage: UNK
     Route: 065
     Dates: start: 20150303, end: 20150303
  3. EPADEL                             /01682402/ [Suspect]
     Active Substance: ETHYL ICOSAPENTATE\ICOSAPENT
     Indication: DYSLIPIDAEMIA
     Dosage: 900 MG, BID
     Route: 048
     Dates: start: 20150224, end: 20150224
  4. ARTIST [Concomitant]
     Active Substance: CARVEDILOL
     Indication: HYPERTENSION
     Dosage: 2.5 MG, QD
     Route: 048
     Dates: start: 20150225, end: 20150303
  5. TANATRIL [Concomitant]
     Active Substance: IMIDAPRIL
     Indication: HYPERTENSION
     Dosage: 5 MG, QD
     Route: 048
     Dates: start: 20150301
  6. EFIENT [Suspect]
     Active Substance: PRASUGREL HYDROCHLORIDE
     Dosage: 3.75 MG, QD
     Route: 048
     Dates: start: 20150225, end: 20150303
  7. EFIENT [Suspect]
     Active Substance: PRASUGREL HYDROCHLORIDE
     Dosage: 3.75 MG, QD
     Route: 048
     Dates: start: 20150218, end: 20150225
  8. BAYASPIRIN [Suspect]
     Active Substance: ASPIRIN
     Indication: STENT PLACEMENT
     Dosage: 100 MG, QD
     Route: 048
     Dates: start: 20150225
  9. EPADEL                             /01682402/ [Suspect]
     Active Substance: ETHYL ICOSAPENTATE\ICOSAPENT
     Dosage: 900 MG, BID
     Route: 048
     Dates: start: 20150301, end: 20150304
  10. ARTIST [Concomitant]
     Active Substance: CARVEDILOL
     Dosage: 5 MG, QD
     Route: 048
     Dates: start: 20150304
  11. LIVALO [Concomitant]
     Active Substance: PITAVASTATIN CALCIUM
     Indication: DYSLIPIDAEMIA
     Dosage: 2 MG, QD
     Route: 048
     Dates: start: 20150301
  12. EFIENT [Suspect]
     Active Substance: PRASUGREL HYDROCHLORIDE
     Indication: STENT PLACEMENT
     Dosage: 20 MG, SINGLE
     Route: 048
     Dates: start: 20150217, end: 20150217
  13. GLIMEPIRIDE. [Concomitant]
     Active Substance: GLIMEPIRIDE
     Indication: DIABETES MELLITUS
     Dosage: .5 MG, QD
     Route: 048
     Dates: start: 20150301, end: 20150303

REACTIONS (4)
  - Subarachnoid haemorrhage [Recovering/Resolving]
  - Nervous system disorder [Unknown]
  - Hypertension [Unknown]
  - Cerebral haemorrhage [Recovering/Resolving]

NARRATIVE: CASE EVENT DATE: 20150224
